FAERS Safety Report 5171688-5 (Version None)
Quarter: 2006Q4

REPORT INFORMATION
  Report Type: 
  Country: None (occurrence: None)
  Receive Date: 20061205
  Receipt Date: 20061121
  Transmission Date: 20070319
  Serious: Yes (Hospitalization, Other)
  Sender: FDA-Public Use
  Company Number: 2006145103

PATIENT
  Age: 81 Year
  Sex: Female
  Weight: 78.9259 kg

DRUGS (12)
  1. LIPITOR [Suspect]
     Indication: BLOOD CHOLESTEROL INCREASED
     Dosage: 10 MG (10 MG,1 IN 1 D)
  2. ZANTAC [Concomitant]
  3. SYNTHROID [Concomitant]
  4. CREON [Concomitant]
  5. ASPIRIN [Concomitant]
  6. COLACE (DOCUSATE SODIUM) [Concomitant]
  7. CALCIUM [Concomitant]
  8. PHYTONADIONE [Concomitant]
  9. VITAMIN D [Concomitant]
  10. TYLENOL [Concomitant]
  11. ACTONEL [Concomitant]
  12. ANASTROZOLE [Concomitant]

REACTIONS (6)
  - AORTIC VALVE STENOSIS [None]
  - BREAST CANCER FEMALE [None]
  - CARDIAC FAILURE CONGESTIVE [None]
  - HYPERTENSION [None]
  - MITRAL VALVE DISEASE [None]
  - SCAR [None]
